FAERS Safety Report 7300683-2 (Version None)
Quarter: 2011Q1

REPORT INFORMATION
  Report Type: 
  Country: None (occurrence: None)
  Receive Date: 20110207
  Receipt Date: 20110124
  Transmission Date: 20110831
  Serious: Yes (Other)
  Sender: FDA-Public Use
  Company Number: 1000018608

PATIENT
  Age: 42 Year
  Sex: Male

DRUGS (1)
  1. LEXAPRO [Suspect]
     Indication: ANXIETY
     Dosage: 10 MG (10 MG, 1 IN 1 D),ORAL
     Route: 048

REACTIONS (4)
  - SLEEP DISORDER [None]
  - SUICIDAL BEHAVIOUR [None]
  - ANXIETY [None]
  - RESTLESSNESS [None]
